FAERS Safety Report 4399535-X (Version None)
Quarter: 2004Q3

REPORT INFORMATION
  Report Type: 
  Country: None (occurrence: None)
  Receive Date: 20040716
  Receipt Date: 20040715
  Transmission Date: 20050211
  Serious: Yes (Other)
  Sender: FDA-Public Use
  Company Number: US-GLAXOSMITHKLINE-A0518548A

PATIENT
  Age: 50 Year
  Sex: Female

DRUGS (5)
  1. ZOFRAN [Suspect]
     Indication: PROPHYLAXIS OF NAUSEA AND VOMITING
     Dosage: 20MG SINGLE DOSE
     Route: 042
     Dates: start: 20040701, end: 20040701
  2. DIAZIDE [Concomitant]
  3. ADVIL [Concomitant]
  4. NORVASC [Concomitant]
  5. ADRIAMYCIN PFS [Concomitant]

REACTIONS (2)
  - PARAESTHESIA [None]
  - PARALYSIS FLACCID [None]
